FAERS Safety Report 16410023 (Version 1)
Quarter: 2019Q2

REPORT INFORMATION
  Report Type: Spontaneous
  Country: BR (occurrence: BR)
  Receive Date: 20190610
  Receipt Date: 20190610
  Transmission Date: 20190711
  Serious: Yes (Other)
  Sender: FDA-Public Use
  Company Number: BR-CELGENEUS-BRA-20190411139

PATIENT
  Age: 91 Year
  Sex: Male

DRUGS (1)
  1. VIDAZA [Suspect]
     Active Substance: AZACITIDINE
     Indication: MYELODYSPLASTIC SYNDROME
     Dosage: 100 MILLIGRAM
     Route: 058
     Dates: start: 20190415, end: 20190421

REACTIONS (18)
  - Pain [Unknown]
  - Injection site pain [Unknown]
  - Decreased appetite [Unknown]
  - Feeling hot [Unknown]
  - Haemoglobin decreased [Unknown]
  - Blood uric acid abnormal [Unknown]
  - Injection site erythema [Unknown]
  - Platelet count decreased [Unknown]
  - Cardiac murmur [Unknown]
  - Pain in extremity [Unknown]
  - Peripheral swelling [Unknown]
  - Angina pectoris [Unknown]
  - Injection site nodule [Unknown]
  - Tremor [Unknown]
  - Dyspnoea [Unknown]
  - Somnolence [Unknown]
  - Pyrexia [Unknown]
  - Pruritus [Unknown]

NARRATIVE: CASE EVENT DATE: 201904
